FAERS Safety Report 7318592-1 (Version None)
Quarter: 2011Q1

REPORT INFORMATION
  Report Type: 
  Country: None (occurrence: None)
  Receive Date: 20110228
  Receipt Date: 20110221
  Transmission Date: 20110831
  Serious: No
  Sender: FDA-Public Use
  Company Number: US-PFIZER INC-2011037827

PATIENT
  Sex: Female
  Weight: 55.782 kg

DRUGS (3)
  1. ADVIL [Suspect]
     Indication: VENOUS INSUFFICIENCY
     Dosage: 200 MG, 1X/DAY
     Route: 048
     Dates: start: 20090101
  2. ADVIL [Suspect]
     Indication: BACK DISORDER
  3. SIMVASTATIN [Suspect]
     Indication: BLOOD CHOLESTEROL INCREASED
     Dosage: 5 MG, 1X/DAY
     Route: 048
     Dates: start: 20110103

REACTIONS (4)
  - FATIGUE [None]
  - ONYCHOCLASIS [None]
  - ALOPECIA [None]
  - NAIL DISORDER [None]
